FAERS Safety Report 5576654-3 (Version None)
Quarter: 2007Q4

REPORT INFORMATION
  Report Type: 
  Country: None (occurrence: None)
  Receive Date: 20071228
  Receipt Date: 20071221
  Transmission Date: 20080405
  Serious: Yes (Hospitalization)
  Sender: FDA-Public Use
  Company Number: US-MERCK-0712USA08589

PATIENT
  Sex: Female

DRUGS (1)
  1. ISENTRESS [Suspect]
     Route: 048
     Dates: start: 20071001

REACTIONS (1)
  - CONVULSION [None]
